FAERS Safety Report 16379390 (Version 1)
Quarter: 2019Q2

REPORT INFORMATION
  Report Type: Spontaneous
  Country: PL (occurrence: PL)
  Receive Date: 20190531
  Receipt Date: 20190531
  Transmission Date: 20190711
  Serious: Yes (Other)
  Sender: FDA-Public Use
  Company Number: PL-TAKEDA-2019TEU006231

PATIENT
  Age: 71 Year
  Sex: Female

DRUGS (1)
  1. DEXILANT [Suspect]
     Active Substance: DEXLANSOPRAZOLE
     Indication: GASTRITIS EROSIVE
     Dosage: 120 MILLIGRAM
     Route: 048
     Dates: start: 20190118, end: 20190122

REACTIONS (11)
  - Decreased appetite [Unknown]
  - Dizziness [Unknown]
  - Body temperature increased [Unknown]
  - Vomiting [Unknown]
  - Pruritus [Unknown]
  - Asthenia [Unknown]
  - Nausea [Unknown]
  - Diarrhoea [Unknown]
  - Abdominal pain [Unknown]
  - Loss of consciousness [Unknown]
  - Flatulence [Unknown]

NARRATIVE: CASE EVENT DATE: 20190119
